FAERS Safety Report 15556527 (Version 2)
Quarter: 2018Q4

REPORT INFORMATION
  Report Type: Spontaneous
  Country: BE (occurrence: BE)
  Receive Date: 20181026
  Receipt Date: 20181226
  Transmission Date: 20190205
  Serious: Yes (Other)
  Sender: FDA-Public Use
  Company Number: BE-PFIZER INC-2018432034

PATIENT
  Age: 55 Year
  Sex: Female
  Weight: 52 kg

DRUGS (7)
  1. ZESTRIL [Concomitant]
     Active Substance: LISINOPRIL
     Indication: HYPERTENSION
     Dosage: 10 MG, 1X/DAY
     Route: 048
     Dates: start: 2015
  2. SOLU-MEDROL [Suspect]
     Active Substance: METHYLPREDNISOLONE SODIUM SUCCINATE
     Dosage: 125 MG, UNK (PRE-MEDICATION OCREVUS)
     Route: 042
     Dates: start: 20180831, end: 20180914
  3. PARACETAMOL [Suspect]
     Active Substance: ACETAMINOPHEN
     Indication: PAIN
     Dosage: 1 G, 1X/DAY
     Route: 048
  4. LIORESAL [Concomitant]
     Active Substance: BACLOFEN
     Indication: PAIN
     Dosage: 25 MG, 1X/DAY
     Route: 048
  5. RIVOTRIL [Concomitant]
     Active Substance: CLONAZEPAM
     Indication: PAIN
     Dosage: 6 GTT, UNK
     Route: 048
  6. GABAPENTINE [Concomitant]
     Active Substance: GABAPENTIN
     Indication: PAIN
     Dosage: 600 MG, 1X/DAY
     Route: 048
     Dates: start: 2014
  7. OCREVUS [Suspect]
     Active Substance: OCRELIZUMAB
     Indication: MULTIPLE SCLEROSIS
     Dosage: 300 MG, UNK (2X300 MG TWO WEEK INTERVAL AND THEN 600 MG)
     Route: 042
     Dates: start: 20180831, end: 20180914

REACTIONS (6)
  - Disease recurrence [Unknown]
  - Transaminases increased [Not Recovered/Not Resolved]
  - Hepatitis toxic [Unknown]
  - Fatigue [Not Recovered/Not Resolved]
  - Neutropenia [Recovering/Resolving]
  - Hepatic enzyme abnormal [Recovering/Resolving]

NARRATIVE: CASE EVENT DATE: 20180902
